FAERS Safety Report 12786819 (Version 1)
Quarter: 2016Q3

REPORT INFORMATION
  Report Type: Report from Study
  Country: AU (occurrence: AU)
  Receive Date: 20160927
  Receipt Date: 20160927
  Transmission Date: 20161109
  Serious: Yes (Hospitalization)
  Sender: FDA-Public Use
  Company Number: AU-B.I. PHARMACEUTICALS,INC./RIDGEFIELD-2016-BI-13873BI

PATIENT
  Age: 72 Year
  Sex: Male
  Weight: 67 kg

DRUGS (7)
  1. CEPHAZOLIN [Concomitant]
     Active Substance: CEFAZOLIN
     Indication: PROPHYLAXIS
     Dosage: 2 G
     Route: 042
     Dates: start: 20160302
  2. FENTANYL. [Concomitant]
     Active Substance: FENTANYL
     Indication: INDUCTION OF ANAESTHESIA
     Dosage: 50 MG
     Route: 042
     Dates: start: 20160302
  3. DEXAMETHASONE. [Concomitant]
     Active Substance: DEXAMETHASONE
     Indication: PROPHYLAXIS
     Dosage: 4 MG
     Route: 042
     Dates: start: 20160302
  4. PARACETAMOL [Concomitant]
     Active Substance: ACETAMINOPHEN
     Indication: PROPHYLAXIS
     Dosage: 1 G
     Route: 048
     Dates: start: 20160302
  5. DABIGATRAN [Suspect]
     Active Substance: DABIGATRAN
     Indication: CEREBROVASCULAR ACCIDENT
     Route: 048
     Dates: start: 20150404, end: 20160228
  6. MIDAZOLAM [Concomitant]
     Active Substance: MIDAZOLAM\MIDAZOLAM HYDROCHLORIDE
     Indication: SEDATIVE THERAPY
     Dosage: 1 MG
     Route: 042
     Dates: start: 20160302
  7. PROPOFOL. [Concomitant]
     Active Substance: PROPOFOL
     Indication: INDUCTION OF ANAESTHESIA
     Dosage: 100 MG
     Route: 042
     Dates: start: 20160302

REACTIONS (1)
  - Bladder cancer [Not Recovered/Not Resolved]

NARRATIVE: CASE EVENT DATE: 20160302
